FAERS Safety Report 23578212 (Version 2)
Quarter: 2024Q4

REPORT INFORMATION
  Report Type: Spontaneous
  Country: US (occurrence: US)
  Receive Date: 20240229
  Receipt Date: 20241224
  Transmission Date: 20250115
  Serious: No
  Sender: BIOGEN
  Company Number: US-BIOGEN-2024BI01252547

PATIENT
  Sex: Male

DRUGS (16)
  1. VUMERITY [Suspect]
     Active Substance: DIROXIMEL FUMARATE
     Indication: Multiple sclerosis
     Route: 050
  2. VUMERITY [Suspect]
     Active Substance: DIROXIMEL FUMARATE
     Dosage: TAKE 2 CAPSULES (462MG) BY MOUTH TWICE DAILY
     Route: 050
  3. GOODSENSE ASPIRIN [Concomitant]
     Route: 050
  4. GLUTAMINE [Concomitant]
     Active Substance: GLUTAMINE
     Route: 050
  5. LEVOCARNITINE [Concomitant]
     Active Substance: LEVOCARNITINE
     Route: 050
  6. MENAQUINONE 6 [Concomitant]
     Active Substance: MENAQUINONE 6
     Route: 050
  7. VITAMIN A D [Concomitant]
     Route: 050
  8. LYSINE [Concomitant]
     Active Substance: LYSINE
     Route: 050
  9. OMEGA 3 [Concomitant]
     Active Substance: CAPSAICIN
     Route: 050
  10. DEXPANTHENOL\NIACINAMIDE\PYRIDOXINE HYDROCHLORIDE\RIBOFLAVIN 5^-PHOSPH [Concomitant]
     Active Substance: DEXPANTHENOL\NIACINAMIDE\PYRIDOXINE HYDROCHLORIDE\RIBOFLAVIN 5^-PHOSPHATE SODIUM\THIAMINE HYDROCHLOR
     Route: 050
  11. VITAMIN D3 [Concomitant]
     Active Substance: CHOLECALCIFEROL
     Route: 050
  12. OMEPRAZOLE [Concomitant]
     Active Substance: OMEPRAZOLE
     Route: 050
  13. METOPROLOL TARTRATE [Concomitant]
     Active Substance: METOPROLOL TARTRATE
     Route: 050
  14. BUPROPION HYDROCHLORIDE [Concomitant]
     Active Substance: BUPROPION HYDROCHLORIDE
     Route: 050
  15. HYDROCHLOROTHIAZIDE [Concomitant]
     Active Substance: HYDROCHLOROTHIAZIDE
     Route: 050
  16. MODAFINIL [Concomitant]
     Active Substance: MODAFINIL
     Route: 050

REACTIONS (3)
  - Nasopharyngitis [Unknown]
  - Flushing [Unknown]
  - Diarrhoea [Recovered/Resolved]
